FAERS Safety Report 23565360 (Version 4)
Quarter: 2024Q2

REPORT INFORMATION
  Report Type: Spontaneous
  Country: US (occurrence: US)
  Receive Date: 20240226
  Receipt Date: 20240625
  Transmission Date: 20240716
  Serious: Yes (Other)
  Sender: FDA-Public Use
  Company Number: US-SA-SAC20240223000172

PATIENT
  Age: 34 Year
  Sex: Male

DRUGS (4)
  1. ALPROLIX [Suspect]
     Active Substance: EFTRENONACOG ALFA
     Indication: Factor IX deficiency
     Dosage: 7900 U (7110-8690), Q10D FOR PROPHYLAXIS (VIA SLOW IV PUSH)
     Route: 042
     Dates: start: 202401
  2. ALPROLIX [Suspect]
     Active Substance: EFTRENONACOG ALFA
     Indication: Factor IX deficiency
     Dosage: 7900 U (7110-8690), Q10D FOR PROPHYLAXIS (VIA SLOW IV PUSH)
     Route: 042
     Dates: start: 202401
  3. ALPROLIX [Suspect]
     Active Substance: EFTRENONACOG ALFA
     Dosage: 7900 U (7110-8690), QD FOR BLEEDING EPISODES (SLOW IV PUSH)
     Route: 042
     Dates: start: 202401
  4. ALPROLIX [Suspect]
     Active Substance: EFTRENONACOG ALFA
     Dosage: 7900 U (7110-8690), QD FOR BLEEDING EPISODES (SLOW IV PUSH)
     Route: 042
     Dates: start: 202401

REACTIONS (4)
  - Muscle haemorrhage [Unknown]
  - Injury [Unknown]
  - Haemorrhage [Recovered/Resolved]
  - Haemorrhage [Unknown]

NARRATIVE: CASE EVENT DATE: 20240101
